FAERS Safety Report 14249069 (Version 1)
Quarter: 2017Q4

REPORT INFORMATION
  Report Type: Spontaneous
  Country: US (occurrence: US)
  Receive Date: 20171204
  Receipt Date: 20171204
  Transmission Date: 20180321
  Serious: No
  Sender: FDA-Public Use
  Company Number: US-GLAXOSMITHKLINE-US2017183795

PATIENT
  Sex: Female

DRUGS (12)
  1. FUROSEMIDE. [Concomitant]
     Active Substance: FUROSEMIDE
  2. METOCLOPRAMIDE. [Concomitant]
     Active Substance: METOCLOPRAMIDE
  3. SIMVASTATIN. [Concomitant]
     Active Substance: SIMVASTATIN
  4. BREO ELLIPTA [Suspect]
     Active Substance: FLUTICASONE FUROATE\VILANTEROL TRIFENATATE
     Indication: ASTHMA
  5. LEVOTHYROXINE. [Concomitant]
     Active Substance: LEVOTHYROXINE
  6. ASPIRIN. [Concomitant]
     Active Substance: ASPIRIN
  7. ISOSORBIDE. [Concomitant]
     Active Substance: ISOSORBIDE
  8. BREO ELLIPTA [Suspect]
     Active Substance: FLUTICASONE FUROATE\VILANTEROL TRIFENATATE
     Indication: CHRONIC OBSTRUCTIVE PULMONARY DISEASE
     Dosage: 1 PUFF(S), QD
     Route: 055
     Dates: start: 201704
  9. OMEPRAZOLE. [Concomitant]
     Active Substance: OMEPRAZOLE
  10. ATENOLOL. [Concomitant]
     Active Substance: ATENOLOL
  11. KLOR-CON [Concomitant]
     Active Substance: POTASSIUM CHLORIDE
  12. WARFARIN [Concomitant]
     Active Substance: WARFARIN

REACTIONS (9)
  - Dysphonia [Unknown]
  - Tremor [Unknown]
  - Wheezing [Unknown]
  - Sputum discoloured [Unknown]
  - Headache [Unknown]
  - Influenza [Unknown]
  - Cough [Unknown]
  - Nervousness [Unknown]
  - Condition aggravated [Unknown]
